FAERS Safety Report 25682517 (Version 2)
Quarter: 2025Q3

REPORT INFORMATION
  Report Type: Spontaneous
  Country: US (occurrence: US)
  Receive Date: 20250814
  Receipt Date: 20250901
  Transmission Date: 20251021
  Serious: Yes (Death, Life-Threatening, Hospitalization)
  Sender: TEVA
  Company Number: US-TEVA-VS-3360111

PATIENT
  Sex: Female

DRUGS (1)
  1. LOPERAMIDE [Suspect]
     Active Substance: LOPERAMIDE
     Indication: Back pain
     Route: 065

REACTIONS (10)
  - Brain injury [Fatal]
  - Drug abuse [Unknown]
  - Toxicity to various agents [Unknown]
  - Ventricular fibrillation [Unknown]
  - Ventricular tachycardia [Unknown]
  - Intentional overdose [Unknown]
  - Cardiac arrest [Recovering/Resolving]
  - Supraventricular tachycardia [Unknown]
  - Metabolic acidosis [Unknown]
  - Hypotension [Unknown]
